FAERS Safety Report 24677442 (Version 1)
Quarter: 2024Q4

REPORT INFORMATION
  Report Type: Spontaneous
  Country: US (occurrence: US)
  Receive Date: 20241129
  Receipt Date: 20241129
  Transmission Date: 20250114
  Serious: Yes (Other)
  Sender: ALEXION PHARMACEUTICALS
  Company Number: US-AstraZeneca-CH-00752231A

PATIENT

DRUGS (4)
  1. LYNPARZA [Suspect]
     Active Substance: OLAPARIB
     Dosage: UNK
     Route: 065
  2. LYNPARZA [Suspect]
     Active Substance: OLAPARIB
     Dosage: UNK
  3. LYNPARZA [Suspect]
     Active Substance: OLAPARIB
     Dosage: UNK
     Route: 065
  4. LYNPARZA [Suspect]
     Active Substance: OLAPARIB
     Dosage: UNK

REACTIONS (12)
  - Prostate cancer [Unknown]
  - Blood test abnormal [Unknown]
  - Immune system disorder [Unknown]
  - White blood cell count abnormal [Unknown]
  - Red blood cell count abnormal [Unknown]
  - Haemoglobin decreased [Unknown]
  - Haematocrit abnormal [Unknown]
  - Mean cell volume increased [Unknown]
  - Monocyte count increased [Unknown]
  - Antineutrophil cytoplasmic antibody decreased [Unknown]
  - Granulocyte count decreased [Unknown]
  - Lymphocyte count abnormal [Unknown]
